FAERS Safety Report 14578291 (Version 5)
Quarter: 2018Q2

REPORT INFORMATION
  Report Type: Other
  Country: PL (occurrence: PL)
  Receive Date: 20180227
  Receipt Date: 20180507
  Transmission Date: 20180711
  Serious: Yes (Death, Hospitalization, Other)
  Sender: FDA-Public Use
  Company Number: PL-ASTELLAS-2018US009963

PATIENT
  Age: 56 Year
  Sex: Female

DRUGS (21)
  1. DEXAMETHASONE. [Suspect]
     Active Substance: DEXAMETHASONE
     Indication: PLASMA CELL MYELOMA
     Dosage: UNK, CYCLIC (VD-PACE)
     Route: 065
  2. CISPLATIN. [Suspect]
     Active Substance: CISPLATIN
     Indication: PLASMA CELL MYELOMA
  3. CYCLOPHOSPHAMIDE. [Suspect]
     Active Substance: CYCLOPHOSPHAMIDE
     Indication: PLASMA CELL MYELOMA
     Dosage: UNK UNK, CYCLIC (CTD REGIMEN)
     Route: 065
  4. CYCLOPHOSPHAMIDE. [Suspect]
     Active Substance: CYCLOPHOSPHAMIDE
     Indication: PLASMA CELL MYELOMA
  5. ENDOXANA [Suspect]
     Active Substance: CYCLOPHOSPHAMIDE
     Indication: PLASMA CELL MYELOMA
     Dosage: UNK UNK, CYCLIC
     Route: 065
  6. BORTEZOMIB [Suspect]
     Active Substance: BORTEZOMIB
     Indication: PLASMA CELL MYELOMA
  7. CISPLATIN. [Suspect]
     Active Substance: CISPLATIN
     Indication: PLASMA CELL MYELOMA
     Dosage: UNK UNK, CYCLIC
     Route: 065
  8. MICAFUNGIN [Suspect]
     Active Substance: MICAFUNGIN
     Route: 065
  9. ETOPOSIDE. [Suspect]
     Active Substance: ETOPOSIDE
     Indication: PLASMA CELL MYELOMA
  10. BORTEZOMIB [Suspect]
     Active Substance: BORTEZOMIB
     Indication: PLASMA CELL MYELOMA
     Dosage: UNK, CYCLIC (VD-PACE) (LYOPHILIZED POWDER, 2 CYCLES)
     Route: 065
  11. THALIDOMIDE [Suspect]
     Active Substance: THALIDOMIDE
     Indication: CHEMOTHERAPY
     Dosage: UNK UNK, UNKNOWN FREQ.
     Route: 065
  12. ETOPOSIDE. [Suspect]
     Active Substance: ETOPOSIDE
     Indication: PLASMA CELL MYELOMA
     Dosage: UNK, CYCLIC
     Route: 065
  13. DOXORUBICIN [Suspect]
     Active Substance: DOXORUBICIN
     Indication: PLASMA CELL MYELOMA
  14. BENDAMUSTINE HYDROCHLORIDE. [Suspect]
     Active Substance: BENDAMUSTINE HYDROCHLORIDE
     Indication: PLASMA CELL MYELOMA
     Dosage: UNK UNK, CYCLIC
     Route: 042
  15. MELPHALAN. [Suspect]
     Active Substance: MELPHALAN
     Indication: PLASMA CELL MYELOMA
     Dosage: 120 MG, UNKNOWN FREQ. (HIGH DOSE)
     Route: 065
  16. ENDOXANA [Suspect]
     Active Substance: CYCLOPHOSPHAMIDE
     Indication: CHEMOTHERAPY
  17. DOXORUBICIN [Suspect]
     Active Substance: DOXORUBICIN
     Indication: PLASMA CELL MYELOMA
     Dosage: UNK UNK, CYCLIC
     Route: 065
  18. MICAFUNGIN [Suspect]
     Active Substance: MICAFUNGIN
     Indication: CANDIDA INFECTION
     Route: 065
  19. LENALIDOMIDE [Suspect]
     Active Substance: LENALIDOMIDE
     Indication: PLASMA CELL MYELOMA
     Dosage: UNK, CYCLIC
     Route: 065
  20. FLUCONAZOLE. [Suspect]
     Active Substance: FLUCONAZOLE
     Indication: PRODUCT USED FOR UNKNOWN INDICATION
     Dosage: UNK UNK, UNKNOWN FREQ.
     Route: 065
  21. IMMUNOGLOBULIN                     /00025201/ [Suspect]
     Active Substance: HUMAN IMMUNOGLOBULIN G
     Indication: PRODUCT USED FOR UNKNOWN INDICATION
     Dosage: UNK UNK, UNKNOWN FREQ.
     Route: 065

REACTIONS (20)
  - Disease progression [Fatal]
  - Fungal oesophagitis [Fatal]
  - Mucosal erosion [Fatal]
  - Oral fungal infection [Fatal]
  - Varicella zoster virus infection [Fatal]
  - Pulmonary mycosis [Fatal]
  - Sinusitis [Fatal]
  - Gastrointestinal fungal infection [Fatal]
  - Acute sinusitis [Fatal]
  - Sinus polyp [Fatal]
  - Enterococcal sepsis [Fatal]
  - Candida infection [Fatal]
  - Herpes zoster [Fatal]
  - Pneumonia fungal [Fatal]
  - Pancytopenia [Fatal]
  - Pain [Fatal]
  - Oral disorder [Fatal]
  - Nasal abscess [Fatal]
  - Plasma cell leukaemia [Fatal]
  - Sepsis [Fatal]

NARRATIVE: CASE EVENT DATE: 2017
